FAERS Safety Report 9515309 (Version 3)
Quarter: 2013Q4

REPORT INFORMATION
  Report Type: Spontaneous
  Country: US (occurrence: US)
  Receive Date: 20130911
  Receipt Date: 20131016
  Transmission Date: 20140711
  Serious: Yes (Death, Hospitalization)
  Sender: FDA-Public Use
  Company Number: US-UCBSA-063843

PATIENT
  Age: 79 Year
  Sex: Male
  Weight: 63.5 kg

DRUGS (13)
  1. NEUPRO [Suspect]
     Indication: PARKINSON^S DISEASE
     Dosage: ONCE DAILY AT 10 AM
     Route: 062
     Dates: start: 201208, end: 2012
  2. SINEMET [Concomitant]
     Indication: PARKINSON^S DISEASE
     Dosage: DAILY AND TOTAL DAILY DOSE: 25/100 MG, 2 YEARS
     Route: 048
     Dates: start: 2012
  3. XANAX [Concomitant]
     Indication: ANXIETY
     Dosage: UNKNOWN DOSE, FOR 1 AND HALF YEARS
     Dates: start: 2012
  4. XANAX [Concomitant]
     Indication: AKINESIA
     Dosage: UNKNOWN DOSE, FOR 1 AND HALF YEARS
     Dates: start: 2012
  5. PAXIL [Concomitant]
     Indication: ANXIETY
     Dosage: DAILY DOSE: 20 MG IN AM AND 10 MG IN PM, 1 YEAR
     Route: 048
     Dates: start: 2012
  6. PAXIL [Concomitant]
     Indication: AKINESIA
     Dosage: DAILY DOSE: 20 MG IN AM AND 10 MG IN PM, 1 YEAR
     Route: 048
     Dates: start: 2012
  7. TOPROL XL [Concomitant]
     Indication: BLOOD PRESSURE
     Dosage: FROM 7 YEARS
     Route: 048
  8. TOPROL XL [Concomitant]
     Indication: ATRIAL FIBRILLATION
     Dosage: FROM 7 YEARS
     Route: 048
  9. SPIRIVA [Concomitant]
     Indication: CHRONIC OBSTRUCTIVE PULMONARY DISEASE
     Dosage: DOSE: 1 IN AM, INHALED, 4 YEARS
  10. ALBURTEROL INHALER [Concomitant]
     Indication: CHRONIC OBSTRUCTIVE PULMONARY DISEASE
     Dosage: INHALED, FROM 4 YEARS
  11. ASMANEX [Concomitant]
     Indication: CHRONIC OBSTRUCTIVE PULMONARY DISEASE
     Dosage: 220 MG INHALED, 2 SPRAYS IF NECESSARY, FROM 4 YEARS
  12. EXELON [Concomitant]
     Indication: DEMENTIA
     Dosage: ONCE DAILY AT 10 AM, FROM 2 YEARS
     Route: 062
  13. ASPIRIN [Concomitant]
     Indication: ATRIAL FIBRILLATION
     Dosage: FROM 2 YEARS
     Route: 048

REACTIONS (6)
  - Parkinsonism [Fatal]
  - Hallucination [Not Recovered/Not Resolved]
  - Confusional state [Unknown]
  - Gait disturbance [Unknown]
  - Fall [Recovered/Resolved]
  - Laceration [Unknown]
